FAERS Safety Report 5680591-3 (Version None)
Quarter: 2008Q1

REPORT INFORMATION
  Report Type: 
  Country: None (occurrence: None)
  Receive Date: 20080326
  Receipt Date: 20080314
  Transmission Date: 20080703
  Serious: Yes (Death)
  Sender: FDA-Public Use
  Company Number: DE-ROCHE-553544

PATIENT
  Age: 43 Year
  Sex: Female
  Weight: 58 kg

DRUGS (6)
  1. CAPECITABINE [Suspect]
     Dosage: STRENGTH: 500 MG AND 150 MG, EXPIRY DATE: SEP 2008 AND JULY 2008. FREQUENCY: DAY 1-14, DAY 21.
     Route: 048
     Dates: start: 20070803, end: 20071030
  2. TRAMADOL HCL [Concomitant]
     Indication: ABDOMINAL PAIN
     Dosage: INDICATION: RIP FRACTURE
     Dates: start: 20070717
  3. EUTHYROX [Concomitant]
     Indication: THYROID DISORDER
     Route: 048
     Dates: start: 20070701
  4. DIMENHYDRINATE [Concomitant]
     Indication: NAUSEA
     Dosage: DRUG REPORTED AS VOMEX DRAGEES; DOSE REPORTED AS 1
     Route: 048
     Dates: start: 20070810
  5. PASPERTIN [Concomitant]
     Indication: NAUSEA
     Route: 048
     Dates: start: 20070828
  6. LASIX [Concomitant]
     Indication: OEDEMA
     Route: 048
     Dates: start: 20071016

REACTIONS (1)
  - DEATH [None]
